FAERS Safety Report 24000238 (Version 1)
Quarter: 2024Q2

REPORT INFORMATION
  Report Type: Spontaneous
  Country: CN (occurrence: CN)
  Receive Date: 20240621
  Receipt Date: 20240621
  Transmission Date: 20240716
  Serious: Yes (Other)
  Sender: FDA-Public Use
  Company Number: CN-LEADIANT BIOSCIENCES, INC.-2024LBI000218

PATIENT
  Age: 67 Year
  Sex: Male
  Weight: 48.5 kg

DRUGS (1)
  1. CARNITOR [Suspect]
     Active Substance: LEVOCARNITINE
     Indication: Carnitine deficiency
     Dosage: 1.0 GRAMS INTRAVENOUS DRIP AT THE END OF EACH DIALYSIS
     Route: 042
     Dates: start: 20240511, end: 20240511

REACTIONS (3)
  - Seizure [Recovering/Resolving]
  - Aphasia [Recovering/Resolving]
  - Incorrect drug administration rate [Unknown]

NARRATIVE: CASE EVENT DATE: 20240511
